FAERS Safety Report 7534471-9 (Version None)
Quarter: 2011Q2

REPORT INFORMATION
  Report Type: 
  Country: None (occurrence: None)
  Receive Date: 20110608
  Receipt Date: 20110531
  Transmission Date: 20111010
  Serious: Yes (Death, Other)
  Sender: FDA-Public Use
  Company Number: JP-AMGEN-JPNCT2011029289

PATIENT
  Age: 60 Year
  Sex: Male
  Weight: 67 kg

DRUGS (15)
  1. LEUCOVORIN CALCIUM [Suspect]
     Indication: COLORECTAL CANCER
     Route: 041
     Dates: start: 20101124, end: 20101124
  2. FLUOROURACIL [Suspect]
     Indication: COLORECTAL CANCER
     Route: 040
     Dates: start: 20101124, end: 20101124
  3. KYTRIL [Concomitant]
     Dosage: UNK
     Route: 042
  4. DECADRON [Concomitant]
     Dosage: UNK
     Route: 042
  5. MINOCYCLINE HCL [Concomitant]
     Dosage: UNK
     Route: 048
  6. LASIX [Concomitant]
     Dosage: UNK
     Route: 048
  7. HIRUDOID SOFT [Concomitant]
     Dosage: UNK
     Route: 062
  8. DEXALTIN [Concomitant]
     Dosage: UNK
     Route: 062
  9. CORTICOSTEROIDS [Concomitant]
     Indication: PROPHYLAXIS
     Dosage: UNK
     Route: 065
  10. ISODINE GARGLE [Concomitant]
     Dosage: UNK
     Route: 049
  11. ALDACTONE [Concomitant]
     Dosage: UNK
     Route: 048
  12. IRINOTECAN HCL [Suspect]
     Indication: COLORECTAL CANCER
     Route: 041
     Dates: start: 20101124, end: 20101124
  13. FLUOROURACIL [Suspect]
     Route: 041
     Dates: start: 20101124, end: 20101124
  14. EMEND [Concomitant]
     Route: 048
  15. PANITUMUMAB [Suspect]
     Indication: COLORECTAL CANCER
     Dosage: 6 MG/KG, Q2WK
     Route: 041
     Dates: start: 20101124, end: 20110420

REACTIONS (5)
  - STOMATITIS [None]
  - COLORECTAL CANCER [None]
  - PLEURAL EFFUSION [None]
  - HEPATIC FUNCTION ABNORMAL [None]
  - ECZEMA [None]
